FAERS Safety Report 18522765 (Version 1)
Quarter: 2020Q4

REPORT INFORMATION
  Report Type: Other
  Country: TR (occurrence: TR)
  Receive Date: 20201119
  Receipt Date: 20201119
  Transmission Date: 20210114
  Serious: Yes (Other)
  Sender: FDA-Public Use
  Company Number: TR-ROCHE-2711315

PATIENT

DRUGS (5)
  1. TROPICAMIDE. [Concomitant]
     Active Substance: TROPICAMIDE
  2. PROPARACAINE HYDROCHLORIDE. [Concomitant]
     Active Substance: PROPARACAINE HYDROCHLORIDE
  3. PHENYLEPHRINE [Concomitant]
     Active Substance: PHENYLEPHRINE HYDROCHLORIDE
  4. BEVACIZUMAB. [Suspect]
     Active Substance: BEVACIZUMAB
     Indication: RETINOPATHY OF PREMATURITY
     Dosage: 0.625MG/0.025ML
     Route: 050
  5. POVIDONE-IODINE. [Concomitant]
     Active Substance: POVIDONE-IODINE

REACTIONS (3)
  - Cataract [Unknown]
  - Off label use [Unknown]
  - Intentional product use issue [Unknown]
